FAERS Safety Report 9013930 (Version 1)
Quarter: 2013Q1

REPORT INFORMATION
  Report Type: Spontaneous
  Country: US (occurrence: None)
  Receive Date: 20130109
  Receipt Date: 20130109
  Transmission Date: 20140127
  Serious: Yes (Hospitalization)
  Sender: FDA-Public Use
  Company Number: None

PATIENT
  Age: 62 Year
  Sex: Female
  Weight: 124.74 kg

DRUGS (2)
  1. OXYCONTIN, 10 MG, PURDUE PHARMA L.P. [Suspect]
     Route: 048
  2. OXYCODONE HYDROCHLORIDE, 5 MG, MALLINCKRODT [Suspect]
     Route: 048

REACTIONS (6)
  - Asthenia [None]
  - Lethargy [None]
  - Crying [None]
  - Depression [None]
  - Malaise [None]
  - Affect lability [None]
